FAERS Safety Report 7212165-7 (Version None)
Quarter: 2010Q4

REPORT INFORMATION
  Report Type: 
  Country: None (occurrence: None)
  Receive Date: 20101227
  Receipt Date: 20101213
  Transmission Date: 20110411
  Serious: Yes (Other)
  Sender: FDA-Public Use
  Company Number: GER/UKI/10/0016907

PATIENT
  Age: 68 Year
  Sex: Female

DRUGS (4)
  1. AMLODIPINE [Suspect]
     Indication: HYPERTENSION
     Dosage: DOSE REDUCED
  2. RAMIPRIL [Suspect]
     Indication: HYPERTENSION
     Dosage: DOSE REDUCED
  3. SOTALOL HCL [Suspect]
     Indication: HYPERTENSION
     Dosage: DOSE REDUCED
  4. FUROSEMIDE [Suspect]
     Indication: HYPERTENSION
     Dosage: DOSE REDUCED

REACTIONS (3)
  - CAROTID ARTERY STENOSIS [None]
  - DYSKINESIA [None]
  - TRANSIENT ISCHAEMIC ATTACK [None]
